FAERS Safety Report 8106124 (Version 3)
Quarter: 2013Q4

REPORT INFORMATION
  Report Type: Spontaneous
  Country: US (occurrence: US)
  Receive Date: 20110825
  Receipt Date: 20131122
  Transmission Date: 20140711
  Serious: Yes (Hospitalization, Other)
  Sender: FDA-Public Use
  Company Number: US-BAYER-2011-075363

PATIENT
  Age: 20 Year
  Sex: Female
  Weight: 59.86 kg

DRUGS (4)
  1. YAZ [Suspect]
     Indication: CONTRACEPTION
     Dosage: UNK
     Dates: start: 2008, end: 2009
  2. YAZ [Suspect]
     Indication: PREMENSTRUAL SYNDROME
  3. OCELLA [Suspect]
     Indication: CONTRACEPTION
     Dosage: UNK
     Dates: start: 2008, end: 2009
  4. OCELLA [Suspect]
     Indication: PREMENSTRUAL SYNDROME

REACTIONS (4)
  - Gallbladder injury [None]
  - Injury [None]
  - Biliary dyskinesia [None]
  - Cholecystitis [None]
